FAERS Safety Report 7007400-4 (Version None)
Quarter: 2010Q3

REPORT INFORMATION
  Report Type: 
  Country: None (occurrence: None)
  Receive Date: 20100922
  Receipt Date: 20100810
  Transmission Date: 20110219
  Serious: No
  Sender: FDA-Public Use
  Company Number: US-BAXTER-2010BH003539

PATIENT
  Age: 59 Year
  Sex: Female
  Weight: 107 kg

DRUGS (4)
  1. HEPARIN SODIUM INJECTION [Suspect]
     Indication: BONE OPERATION
     Route: 065
     Dates: start: 20061201, end: 20061201
  2. ALVIAN [Concomitant]
     Indication: PRODUCT USED FOR UNKNOWN INDICATION
     Route: 065
  3. CORTICOSTEROIDS [Concomitant]
     Indication: PRODUCT USED FOR UNKNOWN INDICATION
     Route: 065
  4. IODINE [Concomitant]
     Indication: RENAL FUNCTION TEST
     Route: 065

REACTIONS (4)
  - DIZZINESS [None]
  - HYPOAESTHESIA [None]
  - SWELLING [None]
  - VISION BLURRED [None]
